FAERS Safety Report 4914933-0 (Version None)
Quarter: 2006Q1

REPORT INFORMATION
  Report Type: 
  Country: None (occurrence: None)
  Receive Date: 20060215
  Receipt Date: 20060215
  Transmission Date: 20060701
  Serious: Yes (Hospitalization)
  Sender: FDA-Public Use
  Company Number: None

PATIENT
  Sex: Female
  Weight: 63.5036 kg

DRUGS (1)
  1. AVELOX [Suspect]
     Indication: ANTI-INFECTIVE THERAPY
     Dosage: PO [PRIOR TO ADMISSION]
     Route: 048

REACTIONS (4)
  - DYSPHAGIA [None]
  - HYPOAESTHESIA ORAL [None]
  - THROAT IRRITATION [None]
  - THROAT TIGHTNESS [None]
